FAERS Safety Report 4433809-9 (Version None)
Quarter: 2004Q3

REPORT INFORMATION
  Report Type: 
  Country: None (occurrence: None)
  Receive Date: 20040825
  Receipt Date: 20040805
  Transmission Date: 20050211
  Serious: Yes (Hospitalization)
  Sender: FDA-Public Use
  Company Number: A02200402407

PATIENT
  Age: 58 Year
  Sex: Female

DRUGS (9)
  1. STILNOX - (ZOLPIDEM) [Suspect]
     Dosage: 10 MG QD
     Route: 048
  2. DILTIAZEM HCL [Suspect]
     Dosage: 300 MG OD
     Route: 048
  3. BOSENTAN - (BOSENTAN) [Suspect]
     Indication: PULMONARY HYPERTENSION
     Dosage: SEE IMAGE
     Route: 048
     Dates: start: 20030901, end: 20031015
  4. BOSENTAN - (BOSENTAN) [Suspect]
     Indication: PULMONARY HYPERTENSION
     Dosage: SEE IMAGE
     Route: 048
     Dates: start: 20031016, end: 20040105
  5. BOSENTAN - (BOSENTAN) [Suspect]
     Indication: PULMONARY HYPERTENSION
     Dosage: SEE IMAGE
     Route: 048
     Dates: start: 20040106, end: 20040109
  6. BOSENTAN - (BOSENTAN) [Suspect]
     Indication: PULMONARY HYPERTENSION
     Dosage: SEE IMAGE
     Route: 048
     Dates: start: 20040110
  7. PREVISCAN - (FLUINDIONE) [Concomitant]
     Dosage: 20 MG QD
     Route: 048
  8. LASIX [Suspect]
     Dosage: 250 MG QD
     Route: 048
  9. ALDACTONE [Suspect]
     Dosage: 75 MG QD
     Route: 048

REACTIONS (10)
  - CARDIAC FAILURE [None]
  - CARDIOMEGALY [None]
  - DRY MOUTH [None]
  - DYSPNOEA [None]
  - HYPOXIA [None]
  - NIGHTMARE [None]
  - OEDEMA PERIPHERAL [None]
  - PULMONARY OEDEMA [None]
  - TOOTH EXTRACTION [None]
  - WEIGHT INCREASED [None]
